FAERS Safety Report 4797194-5 (Version None)
Quarter: 2005Q3

REPORT INFORMATION
  Report Type: 
  Country: None (occurrence: None)
  Receive Date: 20050916
  Receipt Date: 20050620
  Transmission Date: 20060218
  Serious: Yes (Other)
  Sender: FDA-Public Use
  Company Number: US-JNJFOC-20050404421

PATIENT
  Age: 26 Year
  Sex: Female
  Weight: 122.9248 kg

DRUGS (2)
  1. TOPAMAX [Suspect]
     Indication: MIGRAINE
     Dosage: 25 + 50 MG, IN 1 DAY
     Dates: start: 20050402
  2. TOPAMAX [Suspect]
     Indication: MIGRAINE
     Dosage: 25 + 50 MG, IN 1 DAY
     Dates: start: 20050408

REACTIONS (1)
  - ANGLE CLOSURE GLAUCOMA [None]
